FAERS Safety Report 6722684-5 (Version None)
Quarter: 2010Q2

REPORT INFORMATION
  Report Type: 
  Country: None (occurrence: None)
  Receive Date: 20100512
  Receipt Date: 20100430
  Transmission Date: 20101027
  Serious: Yes (Other)
  Sender: FDA-Public Use
  Company Number: JP-PFIZER INC-2010051025

PATIENT
  Age: 63 Year
  Sex: Female

DRUGS (3)
  1. SILDENAFIL CITRATE [Suspect]
     Route: 048
  2. EPOPROSTENOL [Concomitant]
     Indication: PULMONARY HYPERTENSION
     Dosage: UNK
  3. BOSENTAN [Concomitant]
     Dosage: UNK

REACTIONS (1)
  - AMNESIA [None]
